FAERS Safety Report 11424411 (Version 1)
Quarter: 2015Q3

REPORT INFORMATION
  Report Type: Spontaneous
  Country: US (occurrence: US)
  Receive Date: 20150827
  Receipt Date: 20150827
  Transmission Date: 20151125
  Serious: No
  Sender: FDA-Public Use
  Company Number: US-SA-2014SA119448

PATIENT
  Age: 79 Year
  Sex: Female

DRUGS (2)
  1. ATENOLOL. [Concomitant]
     Active Substance: ATENOLOL
     Indication: HYPERTENSION
     Dosage: FOR 8 TO 10 YEARS
  2. MULTAQ [Suspect]
     Active Substance: DRONEDARONE
     Indication: MITRAL VALVE INCOMPETENCE
     Dosage: ONE TABLET QAM AND ONE TABLET QPM WITH FOOD
     Route: 048
     Dates: start: 2013

REACTIONS (5)
  - Nausea [Not Recovered/Not Resolved]
  - Dyspnoea [Not Recovered/Not Resolved]
  - Fatigue [Not Recovered/Not Resolved]
  - Constipation [Not Recovered/Not Resolved]
  - Off label use [Unknown]
